FAERS Safety Report 6903180-9 (Version None)
Quarter: 2010Q3

REPORT INFORMATION
  Report Type: 
  Country: None (occurrence: None)
  Receive Date: 20100803
  Receipt Date: 20080610
  Transmission Date: 20110219
  Serious: No
  Sender: FDA-Public Use
  Company Number: US-PFIZER INC-2008037347

PATIENT
  Sex: Female
  Weight: 100 kg

DRUGS (6)
  1. LYRICA [Suspect]
     Indication: FIBROMYALGIA
     Route: 048
     Dates: start: 20070101
  2. LORAZEPAM [Concomitant]
  3. SYNTHROID [Concomitant]
  4. ZOLPIDEM TARTRATE [Concomitant]
  5. REQUIP [Concomitant]
  6. HYDROCODONE BITARTRATE [Concomitant]

REACTIONS (1)
  - DRUG INEFFECTIVE [None]
